FAERS Safety Report 5760729-X (Version None)
Quarter: 2008Q2

REPORT INFORMATION
  Report Type: 
  Country: None (occurrence: None)
  Receive Date: 20080606
  Receipt Date: 20080131
  Transmission Date: 20081010
  Serious: No
  Sender: FDA-Public Use
  Company Number: US-BAYER-200813095NA

PATIENT
  Age: 30 Year
  Sex: Female

DRUGS (2)
  1. MIRENA [Suspect]
     Indication: CONTRACEPTION
     Route: 015
     Dates: start: 20070401
  2. MIRENA [Suspect]
     Route: 015
     Dates: start: 20020401, end: 20070401

REACTIONS (3)
  - AMENORRHOEA [None]
  - GENITAL HAEMORRHAGE [None]
  - VAGINAL HAEMORRHAGE [None]
